FAERS Safety Report 5935006-4 (Version None)
Quarter: 2008Q4

REPORT INFORMATION
  Report Type: 
  Country: None (occurrence: None)
  Receive Date: 20081021
  Receipt Date: 20071005
  Transmission Date: 20090506
  Serious: Yes (Other)
  Sender: FDA-Public Use
  Company Number: 2007S1009897

PATIENT
  Age: 62 Year
  Sex: Female

DRUGS (3)
  1. DILTIAZEM HCL [Suspect]
     Dosage: 240 MG;DAILY
  2. ENALAPRIL MALEATE [Suspect]
  3. INDAPAMIDE [Suspect]

REACTIONS (2)
  - NODAL ARRHYTHMIA [None]
  - SINUS BRADYCARDIA [None]
